FAERS Safety Report 10310973 (Version 3)
Quarter: 2014Q3

REPORT INFORMATION
  Report Type: Report from Study
  Country: AR (occurrence: None)
  Receive Date: 20140715
  Receipt Date: 20140904
  Transmission Date: 20150326
  Serious: Yes (Hospitalization, Other)
  Sender: FDA-Public Use
  Company Number: AEGR000573

PATIENT
  Age: 22 Year
  Sex: Male

DRUGS (3)
  1. ACENOCOUMAROL (ACENOCOUMAROL) [Concomitant]
  2. JUXTAPID [Suspect]
     Active Substance: LOMITAPIDE MESYLATE
     Indication: TYPE IIA HYPERLIPIDAEMIA
     Dates: end: 20140629
  3. ROSUVASTATIN [Concomitant]
     Active Substance: ROSUVASTATIN

REACTIONS (3)
  - Cerebral haematoma [None]
  - Visual acuity reduced [None]
  - Headache [None]

NARRATIVE: CASE EVENT DATE: 2014
